FAERS Safety Report 18627895 (Version 1)
Quarter: 2020Q4

REPORT INFORMATION
  Report Type: Spontaneous
  Country: IN (occurrence: IN)
  Receive Date: 20201217
  Receipt Date: 20201217
  Transmission Date: 20210114
  Serious: Yes (Life-Threatening, Hospitalization)
  Sender: FDA-Public Use
  Company Number: None

PATIENT
  Age: 66 Year
  Sex: Male
  Weight: 80 kg

DRUGS (1)
  1. REMDESIVIR. [Suspect]
     Active Substance: REMDESIVIR
     Indication: COVID-19
     Dates: start: 20201127, end: 20201130

REACTIONS (5)
  - Pneumonia [None]
  - Oxygen saturation decreased [None]
  - Hypoxia [None]
  - Bradycardia [None]
  - Heart rate decreased [None]

NARRATIVE: CASE EVENT DATE: 20201129
